FAERS Safety Report 24177510 (Version 1)
Quarter: 2024Q3

REPORT INFORMATION
  Report Type: Report from Study
  Country: VN (occurrence: VN)
  Receive Date: 20240806
  Receipt Date: 20240806
  Transmission Date: 20241017
  Serious: Yes (Death)
  Sender: ROCHE
  Company Number: VN-ROCHE-10000047722

PATIENT

DRUGS (3)
  1. BEVACIZUMAB [Suspect]
     Active Substance: BEVACIZUMAB
     Indication: Ovarian epithelial cancer
     Dosage: ON DAY 1, CYCLE OF EVERY 21 DAYS X 17 CYCLES
     Route: 042
  2. PACLITAXEL [Suspect]
     Active Substance: PACLITAXEL
     Indication: Ovarian epithelial cancer
     Dosage: ON DAY 1
     Route: 042
  3. CARBOPLATIN [Suspect]
     Active Substance: CARBOPLATIN
     Indication: Ovarian epithelial cancer
     Dosage: AUC 5 6 IV INFUSION ON DAY 1
     Route: 042

REACTIONS (2)
  - Thrombocytopenic purpura [Fatal]
  - Off label use [Fatal]
